FAERS Safety Report 5102106-0 (Version None)
Quarter: 2006Q3

REPORT INFORMATION
  Report Type: 
  Country: None (occurrence: None)
  Receive Date: 20060907
  Receipt Date: 20060622
  Transmission Date: 20061208
  Serious: Yes (Death, Hospitalization)
  Sender: FDA-Public Use
  Company Number: F03200600143

PATIENT
  Age: 60 Year
  Sex: Female

DRUGS (17)
  1. OXALIPLATIN [Suspect]
     Indication: CHRONIC LYMPHOCYTIC LEUKAEMIA REFRACTORY
     Dosage: INTRAVENOUS NOS
     Route: 042
     Dates: start: 20060501, end: 20060501
  2. RITUXAN [Suspect]
     Indication: CHRONIC LYMPHOCYTIC LEUKAEMIA REFRACTORY
     Dosage: INTRAVENOUS NOS
     Route: 042
     Dates: start: 20060501, end: 20060501
  3. CYTARABINE [Suspect]
     Indication: CHRONIC LYMPHOCYTIC LEUKAEMIA REFRACTORY
     Dosage: INTRAVENOUS NOS
     Route: 042
     Dates: start: 20060501, end: 20060501
  4. FLUDARABINE [Suspect]
     Indication: CHRONIC LYMPHOCYTIC LEUKAEMIA REFRACTORY
     Dosage: INTRAVENOUS NOS
     Route: 042
     Dates: start: 20060501, end: 20060501
  5. SULFAMETHOXAZOLE + TRIMETHOPRIM [Concomitant]
  6. VALACYCLOVIR HCL [Concomitant]
  7. LEVOFLOXACIN [Concomitant]
  8. PIOGLITAZONE HCL [Concomitant]
  9. EXENATIDE [Concomitant]
  10. VALSARTAN [Concomitant]
  11. METOPROLOL SUCCINATE [Concomitant]
  12. DIGOXIN [Concomitant]
  13. LEVOTHYROXINE SODIUM [Concomitant]
  14. CETIRIZINE HCL [Concomitant]
  15. ATORVASTATIN [Concomitant]
  16. ONDANSETRON HCL [Concomitant]
  17. DEXTROPROPOXYPHENE HYDROCHLORIDE [Concomitant]

REACTIONS (1)
  - DISEASE PROGRESSION [None]
